FAERS Safety Report 21824773 (Version 1)
Quarter: 2023Q1

REPORT INFORMATION
  Report Type: Spontaneous
  Country: NL (occurrence: NL)
  Receive Date: 20230105
  Receipt Date: 20230105
  Transmission Date: 20230417
  Serious: Yes (Congenital Anomaly)
  Sender: FDA-Public Use
  Company Number: None

PATIENT

DRUGS (1)
  1. VORTIOXETINE [Suspect]
     Active Substance: VORTIOXETINE
     Indication: Depression
     Dosage: 25 MILLIGRAM, QD
     Route: 064
     Dates: start: 20190911

REACTIONS (3)
  - Head circumference abnormal [Not Recovered/Not Resolved]
  - Foetal exposure during pregnancy [Unknown]
  - Overdose [Unknown]
